FAERS Safety Report 13461874 (Version 1)
Quarter: 2017Q2

REPORT INFORMATION
  Report Type: Spontaneous
  Country: US (occurrence: US)
  Receive Date: 20170419
  Receipt Date: 20170419
  Transmission Date: 20170830
  Serious: Yes (Life-Threatening)
  Sender: FDA-Public Use
  Company Number: None

PATIENT
  Age: 63 Year
  Sex: Male
  Weight: 110.5 kg

DRUGS (1)
  1. MORPHINE [Suspect]
     Active Substance: MORPHINE
     Indication: PAIN
     Route: 042
     Dates: start: 20170411, end: 20170411

REACTIONS (5)
  - Sedation [None]
  - Unresponsive to stimuli [None]
  - Respiratory depression [None]
  - Mental status changes [None]
  - Miosis [None]

NARRATIVE: CASE EVENT DATE: 20170411
